FAERS Safety Report 6460228-6 (Version None)
Quarter: 2009Q4

REPORT INFORMATION
  Report Type: 
  Country: None (occurrence: None)
  Receive Date: 20091130
  Receipt Date: 20091120
  Transmission Date: 20100525
  Serious: Yes (Hospitalization, Other)
  Sender: FDA-Public Use
  Company Number: DE-RANBAXY-2009US-29398

PATIENT

DRUGS (1)
  1. CYCLOBENZAPRINE HCL [Suspect]
     Indication: BACK PAIN
     Dosage: 30 MG, DAILY
     Route: 065

REACTIONS (7)
  - ARRHYTHMIA [None]
  - BLOOD BILIRUBIN INCREASED [None]
  - HEART RATE INCREASED [None]
  - MYOCLONUS [None]
  - NYSTAGMUS [None]
  - PROTEIN TOTAL INCREASED [None]
  - TORTICOLLIS [None]
